FAERS Safety Report 7224540-5 (Version None)
Quarter: 2011Q1

REPORT INFORMATION
  Report Type: 
  Country: None (occurrence: None)
  Receive Date: 20110113
  Receipt Date: 20101230
  Transmission Date: 20110831
  Serious: Yes (Death, Life-Threatening)
  Sender: FDA-Public Use
  Company Number: JP-SANOFI-AVENTIS-2011SA002087

PATIENT
  Age: 73 Year
  Sex: Female
  Weight: 44 kg

DRUGS (20)
  1. BUSULFAN [Concomitant]
     Route: 065
     Dates: start: 20100624, end: 20100626
  2. METHYLPREDNISOLONE SODIUM SUCCINATE [Concomitant]
     Route: 065
     Dates: start: 20100625, end: 20100728
  3. MELPHALAN [Concomitant]
     Route: 065
     Dates: start: 20100626, end: 20100627
  4. FLUDARABINE PHOSPHATE [Suspect]
     Route: 065
     Dates: start: 20100622, end: 20100627
  5. VANCOMYCIN HCL [Concomitant]
     Route: 065
     Dates: start: 20100601, end: 20100710
  6. THYMOGLOBULIN [Suspect]
     Indication: STEM CELL TRANSPLANT
     Route: 042
     Dates: start: 20100625, end: 20100625
  7. FOSCARNET SODIUM [Concomitant]
     Route: 065
     Dates: start: 20100606, end: 20100722
  8. VORICONAZOLE [Concomitant]
     Route: 065
     Dates: start: 20100623, end: 20100729
  9. TACROLIMUS [Concomitant]
     Route: 065
     Dates: start: 20100628, end: 20100728
  10. MICAFUNGIN [Concomitant]
     Route: 065
     Dates: start: 20100701, end: 20100702
  11. ETOPOSIDE [Concomitant]
     Route: 065
     Dates: start: 20100622, end: 20100623
  12. SULFAMETHOXAZOLE AND TRIMETHOPRIM [Concomitant]
     Route: 065
     Dates: start: 20100609, end: 20100709
  13. ACYCLOVIR [Concomitant]
     Route: 065
     Dates: start: 20100704, end: 20100723
  14. FLUDARABINE PHOSPHATE [Suspect]
     Indication: STEM CELL TRANSPLANT
     Route: 065
     Dates: start: 20100622, end: 20100627
  15. THYMOGLOBULIN [Suspect]
     Route: 042
     Dates: start: 20100625, end: 20100625
  16. PENTAZOCINE LACTATE [Concomitant]
     Route: 065
     Dates: start: 20100617, end: 20100701
  17. GRANISETRON HYDROCHLORIDE [Concomitant]
     Route: 065
     Dates: start: 20100622, end: 20100627
  18. ITRACONAZOLE [Concomitant]
     Route: 065
     Dates: start: 20100609, end: 20100622
  19. PIPERACILLIN SODIUM [Concomitant]
     Route: 065
     Dates: start: 20100601, end: 20100623
  20. PANIPENEM [Concomitant]
     Route: 065
     Dates: start: 20100601, end: 20100729

REACTIONS (3)
  - RENAL DISORDER [None]
  - LIVER DISORDER [None]
  - INFECTION [None]
